FAERS Safety Report 9162400 (Version 1)
Quarter: 2013Q1

REPORT INFORMATION
  Report Type: Spontaneous
  Country: US (occurrence: US)
  Receive Date: 20130314
  Receipt Date: 20130314
  Transmission Date: 20140127
  Serious: No
  Sender: FDA-Public Use
  Company Number: US-PFIZER INC-2013083168

PATIENT
  Age: 47 Year
  Sex: Female

DRUGS (2)
  1. CELEBREX [Suspect]
     Indication: ARTHROPATHY
     Dosage: UNK
  2. TOPAMAX [Concomitant]
     Dosage: 25 MG, 1X/DAY

REACTIONS (3)
  - Abdominal discomfort [Unknown]
  - Nausea [Recovered/Resolved]
  - Dyspepsia [Recovered/Resolved]
